FAERS Safety Report 16004267 (Version 2)
Quarter: 2019Q1

REPORT INFORMATION
  Report Type: Report from Study
  Country: None (occurrence: DE)
  Receive Date: 20190226
  Receipt Date: 20190306
  Transmission Date: 20190418
  Serious: Yes (Death)
  Sender: FDA-Public Use
  Company Number: DE-ABBVIE-19S-062-2677632-00

PATIENT
  Age: 71 Year
  Sex: Male

DRUGS (1)
  1. DUODOPA [Suspect]
     Active Substance: CARBIDOPA\LEVODOPA
     Indication: PARKINSON^S DISEASE
     Dosage: MD 7.5 ML CRD 4.9 ML/HR ED 2 ML
     Route: 050
     Dates: start: 20160620

REACTIONS (2)
  - General physical health deterioration [Fatal]
  - Food refusal [Unknown]

NARRATIVE: CASE EVENT DATE: 20190228
